FAERS Safety Report 12987254 (Version 2)
Quarter: 2016Q4

REPORT INFORMATION
  Report Type: Report from Study
  Country: US (occurrence: US)
  Receive Date: 20161130
  Receipt Date: 20161230
  Transmission Date: 20170207
  Serious: Yes (Hospitalization, Other)
  Sender: FDA-Public Use
  Company Number: US-GILEAD-2016-0245452

PATIENT
  Age: 30 Year
  Sex: Female

DRUGS (10)
  1. AZTREONAM LYSINE [Suspect]
     Active Substance: AZTREONAM LYSINE
     Indication: CYSTIC FIBROSIS
     Dosage: 75 MG, UNK
     Route: 055
     Dates: start: 20140115
  2. DOXYCYCLIN                         /00055702/ [Concomitant]
  3. PREVIDENT [Concomitant]
     Active Substance: SODIUM FLUORIDE
  4. CARAFATE [Concomitant]
     Active Substance: SUCRALFATE
  5. LANSOPRAZOLE. [Concomitant]
     Active Substance: LANSOPRAZOLE
  6. FLUTICASONE [Concomitant]
     Active Substance: FLUTICASONE\FLUTICASONE PROPIONATE
  7. TRANSDERM                          /00003201/ [Concomitant]
  8. ORKAMBI [Concomitant]
     Active Substance: IVACAFTOR\LUMACAFTOR
  9. PREDNISONE. [Concomitant]
     Active Substance: PREDNISONE
  10. LINEZOLID. [Concomitant]
     Active Substance: LINEZOLID

REACTIONS (4)
  - Mechanical ventilation [Not Recovered/Not Resolved]
  - Tracheostomy [Not Recovered/Not Resolved]
  - Drug dose omission [Not Recovered/Not Resolved]
  - Pneumonia [Not Recovered/Not Resolved]

NARRATIVE: CASE EVENT DATE: 201610
